FAERS Safety Report 6081216-8 (Version None)
Quarter: 2009Q1

REPORT INFORMATION
  Report Type: 
  Country: None (occurrence: None)
  Receive Date: 20090213
  Receipt Date: 20090203
  Transmission Date: 20090719
  Serious: Yes (Other)
  Sender: FDA-Public Use
  Company Number: JPI-P-006047

PATIENT
  Age: 34 Year
  Sex: Female
  Weight: 63.5036 kg

DRUGS (4)
  1. XYREM [Suspect]
     Indication: INSOMNIA
     Dosage: 6 GM (3 GM, 2 IN 1 D), ORAL
     Route: 048
     Dates: start: 20070301, end: 20070601
  2. ESZOPICLONE [Suspect]
     Indication: INSOMNIA
     Dosage: 3 MG, D), ORAL
     Route: 048
  3. CALCIUM POLYCARBOPHIL [Concomitant]
  4. CARISOPRODOL [Concomitant]

REACTIONS (4)
  - HYPOVENTILATION [None]
  - OXYGEN SATURATION DECREASED [None]
  - SLEEP PHASE RHYTHM DISTURBANCE [None]
  - TOTAL LUNG CAPACITY DECREASED [None]
